FAERS Safety Report 7973530-3 (Version None)
Quarter: 2011Q4

REPORT INFORMATION
  Report Type: 
  Country: None (occurrence: None)
  Receive Date: 20111122
  Receipt Date: 20110705
  Transmission Date: 20120403
  Serious: No
  Sender: FDA-Public Use
  Company Number: PHHY2011US49251

PATIENT
  Age: 46 Year
  Sex: Female
  Weight: 62.8 kg

DRUGS (6)
  1. GILENYA [Suspect]
     Indication: MULTIPLE SCLEROSIS
     Dosage: 0.5 MG, DAILY, ORAL
     Route: 048
     Dates: start: 20110104
  2. ZANAFLEX [Concomitant]
  3. FAMPRIDINE (FAMPRIDINE) [Concomitant]
  4. WATER PILLS (AMMONIUM CHLORIDE, CAFFEINE) [Concomitant]
  5. WELLBUTRIN SR [Concomitant]
  6. VALIUM [Concomitant]

REACTIONS (2)
  - WEIGHT INCREASED [None]
  - OEDEMA PERIPHERAL [None]
